FAERS Safety Report 15998635 (Version 1)
Quarter: 2019Q1

REPORT INFORMATION
  Report Type: Spontaneous
  Country: FR (occurrence: FR)
  Receive Date: 20190223
  Receipt Date: 20190223
  Transmission Date: 20190418
  Serious: Yes (Other)
  Sender: FDA-Public Use
  Company Number: FR-ACCORD-108179

PATIENT
  Age: 20 Year
  Sex: Female

DRUGS (2)
  1. ARIPIPRAZOLE. [Suspect]
     Active Substance: ARIPIPRAZOLE
     Indication: NEURODEVELOPMENTAL DISORDER
     Dosage: 10 MG, QD
     Route: 065
  2. RISPERIDONE. [Interacting]
     Active Substance: RISPERIDONE
     Indication: AUTISM SPECTRUM DISORDER
     Route: 065

REACTIONS (8)
  - Intentional self-injury [Unknown]
  - Aggression [Unknown]
  - Drug interaction [Unknown]
  - Agitation [Unknown]
  - Off label use [Unknown]
  - Anxiety [Unknown]
  - Paradoxical drug reaction [Unknown]
  - Scar [Unknown]
